FAERS Safety Report 23111320 (Version 1)
Quarter: 2023Q4

REPORT INFORMATION
  Report Type: Spontaneous
  Country: US (occurrence: US)
  Receive Date: 20231026
  Receipt Date: 20231026
  Transmission Date: 20240110
  Serious: Yes (Other)
  Sender: FDA-Public Use
  Company Number: US-COOPERSURGICAL, INC.-US-2021CPS000086

PATIENT
  Age: 40 Year
  Sex: Female
  Weight: 77.098 kg

DRUGS (3)
  1. PARAGARD T 380A [Suspect]
     Active Substance: COPPER
     Indication: Product used for unknown indication
     Dosage: UNK
     Route: 015
     Dates: start: 201506
  2. FOCALIN [Concomitant]
     Active Substance: DEXMETHYLPHENIDATE HYDROCHLORIDE
     Indication: Attention deficit hyperactivity disorder
     Route: 065
  3. FLAGYL [Concomitant]
     Active Substance: METRONIDAZOLE\METRONIDAZOLE HYDROCHLORIDE
     Indication: Product used for unknown indication
     Dosage: 500 MG, BID
     Route: 065

REACTIONS (8)
  - Cholecystectomy [Unknown]
  - Gallbladder disorder [Unknown]
  - Pharyngitis [Unknown]
  - Dysuria [Unknown]
  - Periorbital dermatitis [Unknown]
  - Disturbance in attention [Unknown]
  - Vaginal infection [Unknown]
  - Off label use [Unknown]

NARRATIVE: CASE EVENT DATE: 20150601
